FAERS Safety Report 13743730 (Version 1)
Quarter: 2017Q3

REPORT INFORMATION
  Report Type: Other
  Country: GB (occurrence: SY)
  Receive Date: 20170711
  Receipt Date: 20170711
  Transmission Date: 20171127
  Serious: Yes (Life-Threatening, Hospitalization, Other)
  Sender: FDA-Public Use
  Company Number: SY-INTERNATIONAL MEDICATION SYSTEMS, LIMITED-2023244

PATIENT
  Age: 15 Year
  Sex: Female

DRUGS (2)
  1. EPINEPHRINE 1:100,000 [Concomitant]
     Active Substance: EPINEPHRINE
     Route: 002
  2. LIDOCAINE 2 % (MANUFACTURER UNKNOWN) (LIDOCAINE) (LIDOCAINE) [Suspect]
     Active Substance: LIDOCAINE
     Indication: DENTAL LOCAL ANAESTHESIA
     Route: 002

REACTIONS (4)
  - Toxicity to various agents [Recovered/Resolved]
  - Wrong technique in product usage process [Recovered/Resolved]
  - Status epilepticus [Recovered/Resolved]
  - Coma [Recovered/Resolved]
